FAERS Safety Report 16756290 (Version 2)
Quarter: 2019Q3

REPORT INFORMATION
  Report Type: Spontaneous
  Country: JP (occurrence: JP)
  Receive Date: 20190829
  Receipt Date: 20190906
  Transmission Date: 20191005
  Serious: Yes (Hospitalization)
  Sender: FDA-Public Use
  Company Number: JP-FERRINGPH-2019FE05423

PATIENT
  Age: 85 Year
  Sex: Female

DRUGS (5)
  1. MECOBALAMIN [Concomitant]
     Active Substance: METHYLCOBALAMIN
     Dosage: ()
     Route: 065
  2. MINIRINMELT [Suspect]
     Active Substance: DESMOPRESSIN ACETATE
     Indication: DIABETES INSIPIDUS
     Dosage: 60 ?G, DAILY
     Route: 065
     Dates: start: 2017
  3. LANSOPRAZOLE. [Concomitant]
     Active Substance: LANSOPRAZOLE
     Dosage: ()
     Route: 065
  4. THYRADIN [Concomitant]
     Active Substance: LEVOTHYROXINE
     Dosage: ()
     Route: 065
  5. CORTRIL [Concomitant]
     Active Substance: HYDROCORTISONE
     Dosage: ()
     Route: 065

REACTIONS (1)
  - Cerebral infarction [Unknown]

NARRATIVE: CASE EVENT DATE: 20190814
